FAERS Safety Report 15523714 (Version 1)
Quarter: 2018Q4

REPORT INFORMATION
  Report Type: Spontaneous
  Country: US (occurrence: US)
  Receive Date: 20181015
  Receipt Date: 20181015
  Transmission Date: 20190205
  Serious: Yes (Death, Hospitalization)
  Sender: FDA-Public Use
  Company Number: None

PATIENT
  Age: 61 Year
  Sex: Male
  Weight: 98.79 kg

DRUGS (19)
  1. EPCLUSA [Suspect]
     Active Substance: SOFOSBUVIR\VELPATASVIR
     Indication: HEPATITIS C
     Route: 048
     Dates: start: 20180327, end: 20180522
  2. CO ENZYME [Concomitant]
  3. SPIRONOLACTONE. [Concomitant]
     Active Substance: SPIRONOLACTONE
  4. CHOLECALCIFEROL [Concomitant]
     Active Substance: CHOLECALCIFEROL
  5. LISINOPRIL. [Concomitant]
     Active Substance: LISINOPRIL
  6. FOLIC ACID. [Concomitant]
     Active Substance: FOLIC ACID
  7. METHADONE [Concomitant]
     Active Substance: METHADONE HYDROCHLORIDE
  8. ARTIFICIAL TEARS [Concomitant]
     Active Substance: GLYCERIN\HYPROMELLOSES\POLYETHYLENE GLYCOL 400
  9. FERROUS SULFATE. [Concomitant]
     Active Substance: FERROUS SULFATE
  10. OXYGEN. [Concomitant]
     Active Substance: OXYGEN
  11. LEVOTHYROXINE. [Concomitant]
     Active Substance: LEVOTHYROXINE
  12. METOPROLOL. [Concomitant]
     Active Substance: METOPROLOL
  13. MAGNESIUM [Concomitant]
     Active Substance: MAGNESIUM
  14. GABAPENTIN. [Concomitant]
     Active Substance: GABAPENTIN
  15. MULTIVITAMIN [Concomitant]
     Active Substance: VITAMINS
  16. BACTRIM [Concomitant]
     Active Substance: SULFAMETHOXAZOLE\TRIMETHOPRIM
  17. PROAIR HFA [Concomitant]
     Active Substance: ALBUTEROL SULFATE
  18. ALBUTEROL. [Concomitant]
     Active Substance: ALBUTEROL
  19. FUROSEMIDE. [Concomitant]
     Active Substance: FUROSEMIDE

REACTIONS (10)
  - Hepatic cirrhosis [None]
  - Disease progression [None]
  - Septic shock [None]
  - Pulse absent [None]
  - Chronic hepatic failure [None]
  - Respiratory arrest [None]
  - Agitation [None]
  - Delirium [None]
  - Respiratory failure [None]
  - Infection [None]

NARRATIVE: CASE EVENT DATE: 20180409
